FAERS Safety Report 15269799 (Version 1)
Quarter: 2018Q3

REPORT INFORMATION
  Report Type: Spontaneous
  Country: US (occurrence: US)
  Receive Date: 20180726
  Receipt Date: 20180726
  Transmission Date: 20181010
  Serious: No
  Sender: FDA-Public Use
  Company Number: None

PATIENT
  Age: 60 Year
  Sex: Male

DRUGS (1)
  1. TENOFOVIR 300 MG GILEAD [Suspect]
     Active Substance: TENOFOVIR
     Indication: RENAL TRANSPLANT
     Route: 048
     Dates: start: 20180426

REACTIONS (1)
  - Product packaging quantity issue [None]

NARRATIVE: CASE EVENT DATE: 20180711
